FAERS Safety Report 17474549 (Version 1)
Quarter: 2020Q1

REPORT INFORMATION
  Report Type: Report from Study
  Country: CN (occurrence: CN)
  Receive Date: 20200228
  Receipt Date: 20200228
  Transmission Date: 20200409
  Serious: Yes (Death)
  Sender: FDA-Public Use
  Company Number: CN-PFIZER INC-2020088395

PATIENT

DRUGS (5)
  1. GEMCITABINE. [Suspect]
     Active Substance: GEMCITABINE
     Indication: T-CELL LYMPHOMA
     Dosage: UNK, CYCLIC (1 G/M^2, DAY 1, EVERY 28 DAYS)
  2. DEXAMETHASONE. [Suspect]
     Active Substance: DEXAMETHASONE
     Indication: T-CELL LYMPHOMA
     Dosage: 40 MG, CYCLIC (DAYS 1-4, EVERY 28 DAYS)
  3. METHOTREXATE SODIUM. [Suspect]
     Active Substance: METHOTREXATE SODIUM
     Indication: T-CELL LYMPHOMA
     Dosage: UNK, CYCLIC (1 G/M^2, DAY 2, EVERY 28 DAYS)
  4. PEGASPARGASE [Suspect]
     Active Substance: PEGASPARGASE
     Indication: T-CELL LYMPHOMA
     Dosage: 3750 IU, CYCLIC (DAY 5, EVERY 28 DAYS)
  5. CISPLATIN. [Suspect]
     Active Substance: CISPLATIN
     Indication: T-CELL LYMPHOMA
     Dosage: 75 MG/ML, CYCLIC (DAY 1, EVERY 28 DAYS)

REACTIONS (1)
  - Pneumonia [Fatal]
